FAERS Safety Report 4895493-X (Version None)
Quarter: 2006Q1

REPORT INFORMATION
  Report Type: 
  Country: None (occurrence: None)
  Receive Date: 20060130
  Receipt Date: 20060125
  Transmission Date: 20060701
  Serious: Yes (Life-Threatening)
  Sender: FDA-Public Use
  Company Number: PT-SANOFI-SYNTHELABO-F01200600235

PATIENT
  Sex: Male

DRUGS (1)
  1. ELOXATIN [Suspect]
     Indication: COLON CANCER
     Dosage: UNK
     Route: 042

REACTIONS (2)
  - GENERAL PHYSICAL HEALTH DETERIORATION [None]
  - HYPOTHERMIA [None]
